FAERS Safety Report 13445649 (Version 1)
Quarter: 2017Q2

REPORT INFORMATION
  Report Type: Spontaneous
  Country: US (occurrence: US)
  Receive Date: 20170415
  Receipt Date: 20170415
  Transmission Date: 20170830
  Serious: Yes (Other)
  Sender: FDA-Public Use
  Company Number: US-JNJFOC-20170409448

PATIENT
  Age: 18 Month
  Sex: Female

DRUGS (1)
  1. BENADRYL [Suspect]
     Active Substance: DIPHENHYDRAMINE HYDROCHLORIDE
     Indication: SEASONAL ALLERGY
     Route: 048

REACTIONS (2)
  - Overdose [Recovering/Resolving]
  - Accidental exposure to product [Recovering/Resolving]
